FAERS Safety Report 4294102-0 (Version None)
Quarter: 2004Q1

REPORT INFORMATION
  Report Type: 
  Country: None (occurrence: None)
  Receive Date: 20040212
  Receipt Date: 20040212
  Transmission Date: 20041129
  Serious: Yes (Hospitalization)
  Sender: FDA-Public Use
  Company Number: None

PATIENT
  Age: 68 Year
  Sex: Female
  Weight: 48.0813 kg

DRUGS (21)
  1. TOPOTECAN DAY 1-5 [Suspect]
     Indication: NEOPLASM RECURRENCE
     Dosage: 0.6 MG/M2
     Dates: start: 20021117, end: 20021121
  2. TOPOTECAN DAY 1-5 [Suspect]
     Indication: SMALL CELL CARCINOMA OF THE CERVIX
     Dosage: 0.6 MG/M2
     Dates: start: 20021117, end: 20021121
  3. TOPOTECAN DAY 1-5 [Suspect]
     Indication: NEOPLASM RECURRENCE
     Dosage: 0.6 MG/M2
     Dates: start: 20021208, end: 20030812
  4. TOPOTECAN DAY 1-5 [Suspect]
     Indication: SMALL CELL CARCINOMA OF THE CERVIX
     Dosage: 0.6 MG/M2
     Dates: start: 20021208, end: 20030812
  5. TOPOTECAN DAY 1-5 [Suspect]
     Indication: NEOPLASM RECURRENCE
     Dosage: 0.6 MG/M2
     Dates: start: 20031229, end: 20040102
  6. TOPOTECAN DAY 1-5 [Suspect]
     Indication: SMALL CELL CARCINOMA OF THE CERVIX
     Dosage: 0.6 MG/M2
     Dates: start: 20031229, end: 20040102
  7. CISPLATIN [Suspect]
     Indication: NEOPLASM RECURRENCE
     Dosage: 50 MG /M2
     Dates: start: 20020119, end: 20020123
  8. CISPLATIN [Suspect]
     Indication: SMALL CELL CARCINOMA OF THE CERVIX
     Dosage: 50 MG /M2
     Dates: start: 20020119, end: 20020123
  9. CISPLATIN [Suspect]
     Indication: NEOPLASM RECURRENCE
     Dosage: 50 MG /M2
     Dates: start: 20021121
  10. CISPLATIN [Suspect]
     Indication: SMALL CELL CARCINOMA OF THE CERVIX
     Dosage: 50 MG /M2
     Dates: start: 20021121
  11. CISPLATIN [Suspect]
     Indication: NEOPLASM RECURRENCE
     Dosage: 50 MG /M2
     Dates: start: 20030812
  12. CISPLATIN [Suspect]
     Indication: SMALL CELL CARCINOMA OF THE CERVIX
     Dosage: 50 MG /M2
     Dates: start: 20030812
  13. CISPLATIN [Suspect]
     Indication: NEOPLASM RECURRENCE
     Dosage: 50 MG /M2
     Dates: start: 20040102
  14. CISPLATIN [Suspect]
     Indication: SMALL CELL CARCINOMA OF THE CERVIX
     Dosage: 50 MG /M2
     Dates: start: 20040102
  15. CISPLATIN [Suspect]
     Indication: NEOPLASM RECURRENCE
     Dosage: 50 MG /M2
     Dates: start: 20040123
  16. CISPLATIN [Suspect]
     Indication: SMALL CELL CARCINOMA OF THE CERVIX
     Dosage: 50 MG /M2
     Dates: start: 20040123
  17. KYTRIL [Concomitant]
  18. REGLAN [Concomitant]
  19. M.V.I. [Concomitant]
  20. NYSTATIN [Concomitant]
  21. SUFAFED [Concomitant]

REACTIONS (3)
  - MARKEDLY REDUCED DIETARY INTAKE [None]
  - NAUSEA [None]
  - VOMITING [None]
